FAERS Safety Report 9572321 (Version 1)
Quarter: 2013Q4

REPORT INFORMATION
  Report Type: Spontaneous
  Country: TR (occurrence: TR)
  Receive Date: 20131001
  Receipt Date: 20131001
  Transmission Date: 20140711
  Serious: Yes (Death, Other)
  Sender: FDA-Public Use
  Company Number: PHHY2013TR108170

PATIENT
  Age: 19 Year
  Sex: Male

DRUGS (3)
  1. CICLOSPORIN [Suspect]
     Indication: APLASTIC ANAEMIA
     Dosage: 5 MG/KG, UNK
  2. CORTICOSTEROIDS [Suspect]
     Dosage: 1 MG/KG, UNK
  3. ATG//ANTITHYMOCYTE IMMUNOGLOBULIN [Concomitant]

REACTIONS (2)
  - Aplastic anaemia [Fatal]
  - Drug ineffective [Unknown]
